FAERS Safety Report 7835100-7 (Version None)
Quarter: 2011Q4

REPORT INFORMATION
  Report Type: 
  Country: None (occurrence: None)
  Receive Date: 20111024
  Receipt Date: 20111011
  Transmission Date: 20120403
  Serious: Yes (Hospitalization, Other)
  Sender: FDA-Public Use
  Company Number: CA-ELI_LILLY_AND_COMPANY-CA201109001685

PATIENT
  Sex: Male

DRUGS (2)
  1. PROZAC [Suspect]
     Indication: MAJOR DEPRESSION
     Dosage: 40 MG, EACH MORNING
  2. ZYPREXA ZYDIS [Suspect]
     Indication: MAJOR DEPRESSION
     Dosage: 20 MG, QD

REACTIONS (7)
  - INCORRECT ROUTE OF DRUG ADMINISTRATION [None]
  - DRUG INEFFECTIVE [None]
  - GASTRECTOMY [None]
  - FIBROMYALGIA [None]
  - HOSPITALISATION [None]
  - OESOPHAGECTOMY [None]
  - OFF LABEL USE [None]
